FAERS Safety Report 17429986 (Version 1)
Quarter: 2020Q1

REPORT INFORMATION
  Report Type: Spontaneous
  Country: US (occurrence: US)
  Receive Date: 20200218
  Receipt Date: 20200218
  Transmission Date: 20200409
  Serious: No
  Sender: FDA-Public Use
  Company Number: US-PFIZER INC-2020068910

PATIENT
  Age: 59 Year
  Sex: Female

DRUGS (1)
  1. IBRANCE [Suspect]
     Active Substance: PALBOCICLIB
     Indication: BREAST CANCER FEMALE
     Dosage: 25 MG, CYCLIC(1 CAPSULE BY MOUTH EVERY DAY WITH FOOD FOR 21 DAYS ON AND 7 DAYS OFF PER 28 DAY CYCLE)
     Route: 048

REACTIONS (2)
  - Dysgeusia [Unknown]
  - Decreased appetite [Unknown]
